FAERS Safety Report 14169090 (Version 2)
Quarter: 2018Q3

REPORT INFORMATION
  Report Type: Spontaneous
  Country: CA (occurrence: CA)
  Receive Date: 20171107
  Receipt Date: 20180815
  Transmission Date: 20181010
  Serious: Yes (Other)
  Sender: FDA-Public Use
  Company Number: CA-SA-2017SA210728

PATIENT
  Sex: Female

DRUGS (11)
  1. HYDROXYCHLOROQUINE [Suspect]
     Active Substance: HYDROXYCHLOROQUINE
     Dosage: 400 MG,UNK
     Route: 048
     Dates: start: 2004, end: 2007
  2. REMICADE [Suspect]
     Active Substance: INFLIXIMAB
     Dosage: UNK UNK,UNK
     Route: 065
     Dates: start: 2007
  3. LEFLUNOMIDE. [Suspect]
     Active Substance: LEFLUNOMIDE
     Dosage: 20 MG,UNK
     Route: 048
     Dates: start: 2007
  4. SODIUM AUROTHIOMALATE [Suspect]
     Active Substance: GOLD SODIUM THIOMALATE
     Dosage: 50 MG,UNK
     Route: 051
  5. ORENCIA [Suspect]
     Active Substance: ABATACEPT
     Indication: RHEUMATOID ARTHRITIS
     Dosage: 750 MG,UNK
     Route: 065
     Dates: start: 20160503, end: 20161020
  6. MELOXICAM. [Concomitant]
     Active Substance: MELOXICAM
  7. ACTEMRA [Suspect]
     Active Substance: TOCILIZUMAB
     Dosage: 8 MG,UNK
     Route: 065
     Dates: start: 20160120, end: 20160412
  8. ENBREL [Suspect]
     Active Substance: ETANERCEPT
     Indication: RHEUMATOID ARTHRITIS
     Dosage: UNK UNK,UNK
     Route: 065
     Dates: start: 2005
  9. HUMIRA [Suspect]
     Active Substance: ADALIMUMAB
     Dosage: UNK UNK,UNK
     Route: 065
  10. METHOTREXATE. [Suspect]
     Active Substance: METHOTREXATE
     Indication: RHEUMATOID ARTHRITIS
     Dosage: 20 MG,QD
     Route: 065
     Dates: start: 2005, end: 2007
  11. SULFASALAZINE. [Concomitant]
     Active Substance: SULFASALAZINE

REACTIONS (6)
  - Infection [Unknown]
  - Rheumatoid arthritis [Unknown]
  - Breast cancer [Unknown]
  - Drug ineffective [Unknown]
  - Loss of consciousness [Unknown]
  - Vomiting [Unknown]
